FAERS Safety Report 4686281-8 (Version None)
Quarter: 2005Q2

REPORT INFORMATION
  Report Type: 
  Country: None (occurrence: None)
  Receive Date: 20050606
  Receipt Date: 20050524
  Transmission Date: 20051028
  Serious: Yes (Death)
  Sender: FDA-Public Use
  Company Number: 2005078369

PATIENT
  Age: 50 Year
  Sex: Female

DRUGS (1)
  1. FRAGMIN [Suspect]
     Indication: LIMB OPERATION
     Dosage: DAILY, SUBCUTANEOUS
     Route: 058
     Dates: start: 20050509, end: 20050501

REACTIONS (3)
  - ALANINE AMINOTRANSFERASE INCREASED [None]
  - ASPARTATE AMINOTRANSFERASE INCREASED [None]
  - GAMMA-GLUTAMYLTRANSFERASE INCREASED [None]
